FAERS Safety Report 6259999-3 (Version None)
Quarter: 2009Q3

REPORT INFORMATION
  Report Type: 
  Country: None (occurrence: None)
  Receive Date: 20090708
  Receipt Date: 20090702
  Transmission Date: 20100115
  Serious: Yes (Other)
  Sender: FDA-Public Use
  Company Number: GB-PFIZER INC-2009235283

PATIENT

DRUGS (2)
  1. LIPITOR [Suspect]
     Dosage: 80 MG, UNK
     Route: 048
  2. TOLTERODINE TARTRATE [Suspect]
     Dosage: 4 MG, UNK
     Route: 048

REACTIONS (1)
  - THROAT CANCER [None]
